FAERS Safety Report 5765110-5 (Version None)
Quarter: 2008Q2

REPORT INFORMATION
  Report Type: 
  Country: None (occurrence: None)
  Receive Date: 20080611
  Receipt Date: 20080530
  Transmission Date: 20081010
  Serious: Yes (Other)
  Sender: FDA-Public Use
  Company Number: JP-JNJFOC-20080601930

PATIENT
  Age: 35 Year
  Sex: Male

DRUGS (2)
  1. ITRIZOLE [Suspect]
     Dosage: TOTAL OF 4 TABLETS ADMINISTERED
     Route: 048
  2. ITRIZOLE [Suspect]
     Indication: SPOROTRICHOSIS
     Dosage: TOTAL OF 4 TABLETS ADMINISTERED
     Route: 048

REACTIONS (5)
  - BLOOD CREATINE PHOSPHOKINASE INCREASED [None]
  - BLOOD POTASSIUM DECREASED [None]
  - MUSCULAR WEAKNESS [None]
  - MYALGIA [None]
  - MYOPATHY [None]
